FAERS Safety Report 25329767 (Version 2)
Quarter: 2025Q4

REPORT INFORMATION
  Report Type: Report from Study
  Country: EU (occurrence: EU)
  Receive Date: 20250519
  Receipt Date: 20251229
  Transmission Date: 20260118
  Serious: Yes (Hospitalization, Other)
  Sender: ROCHE
  Company Number: EU-ROCHE-10000284896

PATIENT

DRUGS (20)
  1. RITUXIMAB [Suspect]
     Active Substance: RITUXIMAB
     Indication: Pemphigus
     Route: 042
  2. RITUXIMAB [Suspect]
     Active Substance: RITUXIMAB
     Indication: Linear IgA disease
     Dosage: 2 WEEKS APART
     Route: 042
  3. RITUXIMAB [Suspect]
     Active Substance: RITUXIMAB
     Indication: Acquired epidermolysis bullosa
  4. RITUXIMAB [Suspect]
     Active Substance: RITUXIMAB
     Indication: Systemic lupus erythematosus
  5. RITUXIMAB [Suspect]
     Active Substance: RITUXIMAB
     Indication: Mucous membrane pemphigoid
  6. MYCOPHENOLATE MOFETIL [Suspect]
     Active Substance: MYCOPHENOLATE MOFETIL
     Indication: Pemphigus
  7. MYCOPHENOLATE MOFETIL [Suspect]
     Active Substance: MYCOPHENOLATE MOFETIL
     Indication: Linear IgA disease
  8. MYCOPHENOLATE MOFETIL [Suspect]
     Active Substance: MYCOPHENOLATE MOFETIL
     Indication: Acquired epidermolysis bullosa
  9. MYCOPHENOLATE MOFETIL [Suspect]
     Active Substance: MYCOPHENOLATE MOFETIL
     Indication: Systemic lupus erythematosus
  10. MYCOPHENOLATE MOFETIL [Suspect]
     Active Substance: MYCOPHENOLATE MOFETIL
     Indication: Mucous membrane pemphigoid
  11. METHOTREXATE [Suspect]
     Active Substance: METHOTREXATE
     Indication: Pemphigus
  12. METHOTREXATE [Suspect]
     Active Substance: METHOTREXATE
     Indication: Linear IgA disease
  13. METHOTREXATE [Suspect]
     Active Substance: METHOTREXATE
     Indication: Acquired epidermolysis bullosa
  14. METHOTREXATE [Suspect]
     Active Substance: METHOTREXATE
     Indication: Systemic lupus erythematosus
  15. METHOTREXATE [Suspect]
     Active Substance: METHOTREXATE
     Indication: Mucous membrane pemphigoid
  16. CYCLOSPORINE [Suspect]
     Active Substance: CYCLOSPORINE
     Indication: Pemphigus
  17. CYCLOSPORINE [Suspect]
     Active Substance: CYCLOSPORINE
     Indication: Linear IgA disease
  18. CYCLOSPORINE [Suspect]
     Active Substance: CYCLOSPORINE
     Indication: Acquired epidermolysis bullosa
  19. CYCLOSPORINE [Suspect]
     Active Substance: CYCLOSPORINE
     Indication: Systemic lupus erythematosus
  20. CYCLOSPORINE [Suspect]
     Active Substance: CYCLOSPORINE
     Indication: Mucous membrane pemphigoid

REACTIONS (6)
  - Off label use [Unknown]
  - Viral infection [Recovering/Resolving]
  - Bacterial infection [Recovering/Resolving]
  - Fungal infection [Recovering/Resolving]
  - Hypogammaglobulinaemia [Recovering/Resolving]
  - Infusion related reaction [Unknown]
